FAERS Safety Report 4540872-3 (Version None)
Quarter: 2004Q4

REPORT INFORMATION
  Report Type: 
  Country: None (occurrence: None)
  Receive Date: 20041228
  Receipt Date: 20041220
  Transmission Date: 20050328
  Serious: Yes (Hospitalization, Disabling)
  Sender: FDA-Public Use
  Company Number: 2004GB03150

PATIENT
  Age: 36 Year
  Sex: Female
  Weight: 70 kg

DRUGS (5)
  1. QUETIAPINE [Suspect]
     Indication: SCHIZOPHRENIA
     Dosage: 200 MG BID PO
     Route: 048
  2. VENLAFAXINE HCL [Concomitant]
  3. HALOPERIDOL [Concomitant]
  4. PROCYCLIDINE HYDROCHLORIDE 2MG TAB [Concomitant]
  5. ZOPICLONE [Concomitant]

REACTIONS (2)
  - CEREBRAL ARTERY OCCLUSION [None]
  - HEMIPARESIS [None]
